FAERS Safety Report 5929248-1 (Version None)
Quarter: 2008Q4

REPORT INFORMATION
  Report Type: 
  Country: None (occurrence: None)
  Receive Date: 20081023
  Receipt Date: 20081023
  Transmission Date: 20090506
  Serious: Yes (Other)
  Sender: FDA-Public Use
  Company Number: None

PATIENT
  Sex: Female
  Weight: 68.0396 kg

DRUGS (1)
  1. CHLORHEXIDINE GLUCONATE [Suspect]
     Indication: TOOTH EXTRACTION
     Dosage: 1/2 OZ 3 X DAY DENTAL
     Route: 004
     Dates: start: 20071129, end: 20071213

REACTIONS (11)
  - DIARRHOEA [None]
  - DYSPEPSIA [None]
  - GASTROINTESTINAL PAIN [None]
  - IMPAIRED HEALING [None]
  - INCREASED UPPER AIRWAY SECRETION [None]
  - INSOMNIA [None]
  - NASOPHARYNGITIS [None]
  - OPEN WOUND [None]
  - ORAL FUNGAL INFECTION [None]
  - POST PROCEDURAL COMPLICATION [None]
  - STOMATITIS [None]
